FAERS Safety Report 12214473 (Version 4)
Quarter: 2016Q2

REPORT INFORMATION
  Report Type: Spontaneous
  Country: JP (occurrence: JP)
  Receive Date: 20160328
  Receipt Date: 20160617
  Transmission Date: 20160815
  Serious: Yes (Hospitalization)
  Sender: FDA-Public Use
  Company Number: JP-JT-EVA201600623KERYXP-001

PATIENT
  Age: 40 Year
  Sex: Male

DRUGS (20)
  1. CRESTOR [Concomitant]
     Active Substance: ROSUVASTATIN CALCIUM
     Dosage: 2.5 MG, QD
     Route: 048
     Dates: start: 20151215
  2. BUFFERED ASPIRIN [Concomitant]
     Active Substance: ASPIRIN
     Dosage: 81 MG, QD
     Route: 048
     Dates: start: 20151215
  3. TEPRENONE [Concomitant]
     Active Substance: TEPRENONE
     Dosage: 50 MG, TID
     Route: 048
     Dates: start: 20151215
  4. LANSOPRAZOLE. [Concomitant]
     Active Substance: LANSOPRAZOLE
     Dosage: 15 MG, QD
     Route: 048
     Dates: start: 20151215
  5. AMITIZA [Concomitant]
     Active Substance: LUBIPROSTONE
     Dosage: 48 MICROGRAM, QD
     Route: 048
     Dates: start: 20151215
  6. NIZORAL [Concomitant]
     Active Substance: KETOCONAZOLE
     Dosage: 1 UNK, UNK
     Route: 003
     Dates: start: 20151215
  7. RISUMIC [Concomitant]
     Active Substance: AMEZINIUM METILSULFATE
     Dosage: 30 MG, QD
     Route: 048
     Dates: start: 20151215
  8. KETOPROFEN. [Concomitant]
     Active Substance: KETOPROFEN
     Dosage: 1 UNK, UNK
     Route: 003
     Dates: start: 20151215
  9. BROTIZOLAM [Concomitant]
     Active Substance: BROTIZOLAM
     Dosage: 0.25 MG, QD
     Route: 048
     Dates: start: 20151215
  10. BROTIZOLAM [Concomitant]
     Active Substance: BROTIZOLAM
     Dosage: 0.25 MG, UNK
     Route: 048
     Dates: start: 20151215
  11. PL [Concomitant]
     Active Substance: ACETAMINOPHEN\CAFFEINE\PROMETHAZINE\SALICYLAMIDE
     Dosage: 1 G, TID
     Route: 048
     Dates: start: 20151215
  12. RIONA [Suspect]
     Active Substance: FERRIC CITRATE ANHYDROUS
     Indication: HYPERPHOSPHATAEMIA
     Dosage: 250 MG, TID
     Route: 048
     Dates: start: 20151215, end: 20160126
  13. ALLEGRA [Concomitant]
     Active Substance: FEXOFENADINE HYDROCHLORIDE
     Dosage: 60 MG, QD
     Route: 048
     Dates: start: 20151215
  14. LAXOBERON [Concomitant]
     Active Substance: SODIUM PICOSULFATE
     Dosage: 1 DF, QD
     Route: 048
     Dates: start: 20151215
  15. TRAMCET [Concomitant]
     Active Substance: ACETAMINOPHEN\TRAMADOL
     Dosage: 1 DF, TID
     Route: 048
     Dates: start: 20151215
  16. BISOPROLOL FUMARATE. [Concomitant]
     Active Substance: BISOPROLOL FUMARATE
     Dosage: 1.25 MG, QD
     Route: 048
     Dates: start: 20151215
  17. RULID [Concomitant]
     Active Substance: ROXITHROMYCIN
     Dosage: 150 MG, QD
     Route: 048
     Dates: start: 20151215
  18. RISUMIC [Concomitant]
     Active Substance: AMEZINIUM METILSULFATE
     Dosage: 10 MG, QD
     Route: 048
  19. TANKARU [Concomitant]
     Indication: HYPERPHOSPHATAEMIA
     Dosage: 500 MG, TID
     Route: 048
     Dates: start: 201207
  20. PURSENNIDE                         /00571901/ [Concomitant]
     Dosage: 12 MG, BID
     Route: 048
     Dates: start: 20151215

REACTIONS (2)
  - Shunt occlusion [Recovered/Resolved]
  - Polycythaemia [Recovering/Resolving]

NARRATIVE: CASE EVENT DATE: 20160126
